FAERS Safety Report 4371895-5 (Version None)
Quarter: 2004Q2

REPORT INFORMATION
  Report Type: 
  Country: None (occurrence: None)
  Receive Date: 20040602
  Receipt Date: 20040602
  Transmission Date: 20050107
  Serious: Yes (Other)
  Sender: FDA-Public Use
  Company Number: None

PATIENT
  Age: 34 Year
  Sex: Male
  Weight: 76 kg

DRUGS (1)
  1. PROPECIA [Suspect]
     Indication: MALE PATTERN BALDNESS
     Dosage: 1 MG EVERY DAY ORAL
     Route: 048
     Dates: start: 20021020, end: 20030320

REACTIONS (4)
  - EJACULATION DISORDER [None]
  - ERECTILE DYSFUNCTION [None]
  - PENIS DISORDER [None]
  - TESTICULAR DISORDER [None]
